FAERS Safety Report 9059877 (Version 2)
Quarter: 2013Q1

REPORT INFORMATION
  Report Type: Spontaneous
  Country: IN (occurrence: IN)
  Receive Date: 20130212
  Receipt Date: 20130226
  Transmission Date: 20140127
  Serious: Yes (Hospitalization)
  Sender: FDA-Public Use
  Company Number: IN-BRISTOL-MYERS SQUIBB COMPANY-17369760

PATIENT
  Age: 49 Year
  Sex: Male

DRUGS (14)
  1. METFORMIN HCL [Suspect]
     Indication: DIABETES MELLITUS
     Dosage: TO 10FEB10?11FEB10-31JAN11?04FEB11-UNK
     Route: 048
     Dates: start: 20090908
  2. NIFEDIPINE [Concomitant]
     Route: 048
     Dates: start: 20090908
  3. CLOPIDOGREL BISULFATE [Concomitant]
     Route: 048
     Dates: start: 20090908
  4. ASPIRIN [Concomitant]
     Route: 048
     Dates: start: 20090908
  5. ATORVASTATIN [Concomitant]
     Route: 048
     Dates: start: 20090908
  6. RAMIPRIL [Concomitant]
     Dosage: 25FEB10-06DEC10,2.5MG?07DEC10-03FEB11,5MG?04FEB11-ONG,0.5MG
     Route: 048
     Dates: start: 20100225
  7. RABEPRAZOLE [Concomitant]
     Route: 048
     Dates: start: 20100326
  8. ISOSORBIDE MONONITRATE [Concomitant]
     Route: 048
     Dates: start: 20100703, end: 20101214
  9. ATENOLOL [Concomitant]
     Dosage: 20DEC1999-06DEC2010,25MG?07DEC10-ONG,50MG
     Route: 048
     Dates: start: 19991220
  10. FOLIC ACID [Concomitant]
     Route: 048
     Dates: start: 20100211
  11. FERROUS FUMARATE [Concomitant]
     Route: 048
     Dates: start: 20100211
  12. PYRIDOXINE HCL [Concomitant]
     Route: 048
     Dates: start: 20100211
  13. CYANOCOBALAMIN [Concomitant]
     Route: 048
     Dates: start: 20100211
  14. ZINC SULFATE [Concomitant]
     Route: 048
     Dates: start: 20100211

REACTIONS (1)
  - Nephrolithiasis [Recovered/Resolved]
